FAERS Safety Report 7341791-X (Version None)
Quarter: 2011Q1

REPORT INFORMATION
  Report Type: 
  Country: None (occurrence: None)
  Receive Date: 20110309
  Receipt Date: 20110302
  Transmission Date: 20110831
  Serious: Yes (Hospitalization)
  Sender: FDA-Public Use
  Company Number: US-ELI_LILLY_AND_COMPANY-US201102004478

PATIENT
  Sex: Female
  Weight: 82.54 kg

DRUGS (12)
  1. ASPIRIN [Concomitant]
     Dosage: 81 MG, DAILY (1/D)
     Route: 048
  2. LOSARTAN POTASSIUM [Concomitant]
     Dosage: UNK, DAILY (1/D)
  3. ACTOS [Concomitant]
     Indication: TYPE 2 DIABETES MELLITUS
     Dosage: 15 MG, UNK
     Route: 048
  4. NSAID'S [Concomitant]
  5. SIMVASTATIN [Concomitant]
     Dosage: 20 MG, UNK
     Route: 048
  6. OMEPRAZOLE [Concomitant]
     Dosage: 20 MG, UNK
     Route: 048
  7. ACE INHIBITORS [Concomitant]
  8. BYETTA [Suspect]
     Indication: TYPE 2 DIABETES MELLITUS
     Dosage: 5 UG, UNK
     Route: 058
  9. BYETTA [Suspect]
     Dosage: 10 UG, 2/D
     Route: 058
  10. DIOVAN [Concomitant]
     Indication: HYPERTENSION
  11. ATENOLOL [Concomitant]
     Indication: HYPERTENSION
     Dosage: 20 MG, DAILY (1/D)
     Route: 048
  12. COZAAR [Concomitant]
     Dosage: 50 MG, DAILY (1/D)

REACTIONS (1)
  - PANCREATITIS [None]
